FAERS Safety Report 6664120-3 (Version None)
Quarter: 2010Q2

REPORT INFORMATION
  Report Type: 
  Country: None (occurrence: None)
  Receive Date: 20100401
  Receipt Date: 20100326
  Transmission Date: 20101027
  Serious: Yes (Hospitalization)
  Sender: FDA-Public Use
  Company Number: B0637866A

PATIENT
  Sex: Male
  Weight: 22 kg

DRUGS (4)
  1. RELENZA [Suspect]
     Indication: INFLUENZA
     Dosage: 20MG PER DAY
     Route: 055
     Dates: start: 20091031
  2. CLARITH [Concomitant]
     Dosage: 200MG PER DAY
     Route: 048
     Dates: start: 20091031, end: 20091102
  3. MEPTIN [Concomitant]
     Dosage: 50MCG PER DAY
     Route: 048
     Dates: start: 20091031, end: 20091102
  4. DASEN [Concomitant]
     Route: 048
     Dates: start: 20091031, end: 20091102

REACTIONS (3)
  - ABDOMINAL PAIN [None]
  - CRYING [None]
  - HENOCH-SCHONLEIN PURPURA [None]
